FAERS Safety Report 24164161 (Version 1)
Quarter: 2024Q3

REPORT INFORMATION
  Report Type: Spontaneous
  Country: CN (occurrence: CN)
  Receive Date: 20240801
  Receipt Date: 20240801
  Transmission Date: 20241017
  Serious: Yes (Hospitalization, Other)
  Sender: TAKEDA
  Company Number: CN-HUTCHMED LIMITED-HMP2024CN01727

PATIENT
  Age: 61 Year
  Sex: Male
  Weight: 48 kg

DRUGS (1)
  1. FRUQUINTINIB [Suspect]
     Active Substance: FRUQUINTINIB
     Indication: Oesophageal carcinoma
     Dosage: 4 MILLIGRAM, QD
     Route: 048
     Dates: start: 20240625, end: 20240715

REACTIONS (5)
  - Platelet count decreased [Recovering/Resolving]
  - Haematochezia [Recovering/Resolving]
  - Haematuria [Unknown]
  - White blood cell count decreased [Unknown]
  - Off label use [Unknown]

NARRATIVE: CASE EVENT DATE: 20240625
